FAERS Safety Report 4558052-4 (Version None)
Quarter: 2005Q1

REPORT INFORMATION
  Report Type: 
  Country: None (occurrence: None)
  Receive Date: 20050121
  Receipt Date: 20040716
  Transmission Date: 20050727
  Serious: No
  Sender: FDA-Public Use
  Company Number: US-BRISTOL-MYERS SQUIBB COMPANY-12643292

PATIENT
  Age: 22 Year
  Sex: Male
  Weight: 77 kg

DRUGS (2)
  1. SERZONE [Suspect]
     Indication: BIPOLAR DISORDER
     Route: 048
     Dates: start: 20040601
  2. SERZONE [Suspect]
     Indication: DEPRESSION
     Route: 048
     Dates: start: 20040601

REACTIONS (7)
  - AGITATION [None]
  - DRY MOUTH [None]
  - HEADACHE [None]
  - NAUSEA [None]
  - TREMOR [None]
  - VISION BLURRED [None]
  - VOMITING [None]
